FAERS Safety Report 9069626 (Version 1)
Quarter: 2013Q1

REPORT INFORMATION
  Report Type: Spontaneous
  Country: DK (occurrence: DK)
  Receive Date: 20130215
  Receipt Date: 20130215
  Transmission Date: 20140127
  Serious: Yes (Death, Hospitalization, Other)
  Sender: FDA-Public Use
  Company Number: PHHY2013DK014858

PATIENT
  Age: 80 Year
  Sex: Female

DRUGS (2)
  1. METHOTREXATE [Suspect]
     Indication: RHEUMATOID ARTHRITIS
     Dosage: 10 MG (2.5 MG 4 TIMES DAILY DOSE)
     Route: 048
  2. PROTON PUMP INHIBITORS [Concomitant]

REACTIONS (7)
  - Sepsis [Fatal]
  - Pancytopenia [Unknown]
  - Pyrexia [Unknown]
  - Oral pain [Unknown]
  - Diarrhoea haemorrhagic [Unknown]
  - Abdominal pain [Unknown]
  - Overdose [Unknown]
